FAERS Safety Report 25750939 (Version 3)
Quarter: 2025Q4

REPORT INFORMATION
  Report Type: Spontaneous
  Country: RS (occurrence: RS)
  Receive Date: 20250902
  Receipt Date: 20251021
  Transmission Date: 20260118
  Serious: Yes (Other)
  Sender: PFIZER
  Company Number: RS-PFIZER INC-PV202500104613

PATIENT
  Age: 50 Year
  Sex: Male

DRUGS (12)
  1. DOXYCYCLINE [Suspect]
     Active Substance: DOXYCYCLINE
     Indication: Tooth extraction
     Dosage: 100 MG, 2X/DAY
     Route: 048
  2. DOXYCYCLINE [Suspect]
     Active Substance: DOXYCYCLINE
     Indication: Tooth abscess drainage
  3. DOXYCYCLINE [Suspect]
     Active Substance: DOXYCYCLINE
     Indication: Tooth abscess
  4. PENICILLIN G [Suspect]
     Active Substance: PENICILLIN G
     Indication: Tooth extraction
     Dosage: 1 MILLION INTERNATIONAL UNITS (MIU)
     Route: 030
  5. PENICILLIN G [Suspect]
     Active Substance: PENICILLIN G
     Indication: Tooth abscess drainage
  6. PENICILLIN G [Suspect]
     Active Substance: PENICILLIN G
     Indication: Tooth abscess
  7. GENTAMICIN [Suspect]
     Active Substance: GENTAMICIN
     Indication: Tooth extraction
     Dosage: 120 MG
     Route: 030
  8. GENTAMICIN [Suspect]
     Active Substance: GENTAMICIN
     Indication: Tooth abscess drainage
  9. GENTAMICIN [Suspect]
     Active Substance: GENTAMICIN
     Indication: Tooth abscess
  10. METRONIDAZOLE [Suspect]
     Active Substance: METRONIDAZOLE
     Indication: Tooth extraction
     Dosage: 400 MG
     Route: 048
  11. METRONIDAZOLE [Suspect]
     Active Substance: METRONIDAZOLE
     Indication: Tooth abscess drainage
  12. METRONIDAZOLE [Suspect]
     Active Substance: METRONIDAZOLE
     Indication: Tooth abscess

REACTIONS (1)
  - Acute generalised exanthematous pustulosis [Recovered/Resolved]
